FAERS Safety Report 19641632 (Version 1)
Quarter: 2021Q3

REPORT INFORMATION
  Report Type: Report from Study
  Country: None (occurrence: CA)
  Receive Date: 20210731
  Receipt Date: 20210731
  Transmission Date: 20211014
  Serious: Yes (Hospitalization)
  Sender: FDA-Public Use
  Company Number: CA-ABBVIE-21K-028-4014842-00

PATIENT
  Sex: Male

DRUGS (1)
  1. HUMIRA [Suspect]
     Active Substance: ADALIMUMAB
     Indication: CROHN^S DISEASE
     Route: 058
     Dates: start: 20190509, end: 202012

REACTIONS (5)
  - Intestinal prolapse [Unknown]
  - Vomiting [Unknown]
  - Abdominal pain [Unknown]
  - Small intestinal obstruction [Unknown]
  - Gastric dilatation [Unknown]

NARRATIVE: CASE EVENT DATE: 2021
